FAERS Safety Report 11534178 (Version 1)
Quarter: 2015Q3

REPORT INFORMATION
  Report Type: Spontaneous
  Country: US (occurrence: US)
  Receive Date: 20150922
  Receipt Date: 20150922
  Transmission Date: 20151125
  Serious: No
  Sender: FDA-Public Use
  Company Number: US-009507513-1509USA008640

PATIENT
  Sex: Male

DRUGS (5)
  1. ZOMIG [Suspect]
     Active Substance: ZOLMITRIPTAN
     Indication: CLUSTER HEADACHE
     Dosage: UNK
  2. GILENYA [Concomitant]
     Active Substance: FINGOLIMOD HYDROCHLORIDE
     Dosage: UNK
     Dates: start: 2014
  3. MAXALT [Suspect]
     Active Substance: RIZATRIPTAN BENZOATE
     Indication: CLUSTER HEADACHE
     Dosage: UNK
     Route: 048
  4. MAXALT [Suspect]
     Active Substance: RIZATRIPTAN BENZOATE
     Indication: HEADACHE
  5. ZOMIG [Suspect]
     Active Substance: ZOLMITRIPTAN
     Indication: HEADACHE

REACTIONS (1)
  - Drug ineffective [Unknown]
